FAERS Safety Report 19792808 (Version 1)
Quarter: 2021Q3

REPORT INFORMATION
  Report Type: Spontaneous
  Country: US (occurrence: US)
  Receive Date: 20210906
  Receipt Date: 20210906
  Transmission Date: 20211014
  Serious: Yes (Hospitalization)
  Sender: FDA-Public Use
  Company Number: US-ROCHE-2904914

PATIENT
  Age: 56 Year
  Sex: Female

DRUGS (2)
  1. GAVRETO [Suspect]
     Active Substance: PRALSETINIB
     Indication: NON-SMALL CELL LUNG CANCER
     Route: 048
  2. OSIMERTINIB. [Concomitant]
     Active Substance: OSIMERTINIB

REACTIONS (5)
  - Oesophagitis [Unknown]
  - Dehydration [Unknown]
  - Syncope [Unknown]
  - Vomiting [Unknown]
  - Cardiac dysfunction [Unknown]
